FAERS Safety Report 13413443 (Version 3)
Quarter: 2019Q4

REPORT INFORMATION
  Report Type: Spontaneous
  Country: US (occurrence: US)
  Receive Date: 20170406
  Receipt Date: 20191001
  Transmission Date: 20200122
  Serious: No
  Sender: FDA-Public Use
  Company Number: US-JNJFOC-20170312444

PATIENT
  Sex: Male

DRUGS (8)
  1. RISPERDAL [Suspect]
     Active Substance: RISPERIDONE
     Indication: SCHIZOAFFECTIVE DISORDER
     Dosage: V1: 2 MG AT MORNING TIME AND 3 MG AT BED TIME
     Route: 048
     Dates: start: 20040908, end: 20040923
  2. RISPERDAL CONSTA [Suspect]
     Active Substance: RISPERIDONE
     Indication: SCHIZOAFFECTIVE DISORDER
     Dosage: V1: VARYING DOSES OF 25 MG, 37.5 MG, 50 MG AND VARYING FREQUENCIES.
     Route: 030
     Dates: start: 20100223, end: 20130812
  3. INVEGA [Suspect]
     Active Substance: PALIPERIDONE
     Indication: SCHIZOAFFECTIVE DISORDER
     Route: 048
     Dates: start: 20071116, end: 20071121
  4. RISPERDAL [Suspect]
     Active Substance: RISPERIDONE
     Indication: DEPRESSION
     Route: 048
     Dates: start: 20100309
  5. RISPERDAL [Suspect]
     Active Substance: RISPERIDONE
     Route: 048
     Dates: start: 20110204, end: 20130812
  6. INVEGA SUSTENNA [Suspect]
     Active Substance: PALIPERIDONE PALMITATE
     Indication: SCHIZOAFFECTIVE DISORDER
     Route: 030
     Dates: start: 20130624
  7. RISPERDAL [Suspect]
     Active Substance: RISPERIDONE
     Dosage: V1: VARYING DOSES OF 1 MG, 2 MG, 3 MG, 4 MG AND VARYING FREQUENCIES.
     Route: 048
     Dates: start: 20100406, end: 20100914
  8. RISPERDAL [Suspect]
     Active Substance: RISPERIDONE
     Indication: PSYCHOTIC DISORDER
     Dosage: VARYING DOSES OF 1 MG, 2 MG, 3 MG AND VARYING FREQUENCIES.
     Route: 048
     Dates: start: 20061010, end: 20100223

REACTIONS (2)
  - Gynaecomastia [Unknown]
  - Emotional distress [Unknown]
